FAERS Safety Report 8063575-X (Version None)
Quarter: 2012Q1

REPORT INFORMATION
  Report Type: 
  Country: None (occurrence: None)
  Receive Date: 20120123
  Receipt Date: 20120112
  Transmission Date: 20120608
  Serious: Yes (Hospitalization)
  Sender: FDA-Public Use
  Company Number: US-BAYER-2011-073231

PATIENT
  Age: 26 Year
  Sex: Female
  Weight: 93 kg

DRUGS (12)
  1. OXYCODONE HCL AND ACETAMINOPHEN [Concomitant]
     Dosage: UNK
     Route: 048
     Dates: start: 20090922
  2. ACETAMINOPHEN [Concomitant]
     Route: 048
  3. FENTANYL [Concomitant]
     Dosage: 100 ?G, UNK
     Dates: start: 20091005
  4. DEMEROL [Concomitant]
     Dosage: UNK
     Route: 042
     Dates: start: 20091005
  5. DROSPIRENONE AND ETHINYL ESTRADIOL [Suspect]
     Indication: PREMENSTRUAL SYNDROME
     Dosage: UNK
     Dates: start: 20070101, end: 20090101
  6. PROPOFOL [Concomitant]
     Dosage: 200 MG, UNK
     Route: 042
     Dates: start: 20091005
  7. LIDOCAINE [Concomitant]
     Dosage: 100 MG, UNK
     Route: 042
     Dates: start: 20091005
  8. BUPIVACAINE HYDROCHLORIDE W/EPINEPHRINE [Concomitant]
     Dosage: UNK
     Dates: start: 20091005
  9. YAZ [Suspect]
     Indication: PREMENSTRUAL SYNDROME
     Dosage: UNK
     Dates: start: 20070101, end: 20090101
  10. ROPIVACAINE HYDROCHLORIDE [Concomitant]
     Dosage: UNK
     Dates: start: 20091005
  11. MORPHINE [Concomitant]
     Dosage: UNK
     Dates: start: 20091005
  12. DECADRON [Concomitant]
     Dosage: UNK
     Route: 042
     Dates: start: 20091005

REACTIONS (3)
  - INJURY [None]
  - DEEP VEIN THROMBOSIS [None]
  - PAIN [None]
